FAERS Safety Report 9980691 (Version 1)
Quarter: 2014Q1

REPORT INFORMATION
  Report Type: Report from Study
  Country: US (occurrence: US)
  Receive Date: 20140307
  Receipt Date: 20140307
  Transmission Date: 20141002
  Serious: Yes (Hospitalization)
  Sender: FDA-Public Use
  Company Number: US-ROCHE-1359051

PATIENT
  Age: 69 Year
  Sex: Male

DRUGS (3)
  1. LUCENTIS [Suspect]
     Indication: DIABETIC RETINOPATHY
     Dosage: SEE B5
     Route: 065
  2. HUMALOG [Concomitant]
     Indication: DIABETES MELLITUS
     Route: 065
  3. METFORMIN [Concomitant]
     Indication: DIABETES MELLITUS
     Route: 065

REACTIONS (4)
  - Ulcer haemorrhage [Unknown]
  - Gastric cancer [Unknown]
  - Eating disorder [Not Recovered/Not Resolved]
  - Aortic valve incompetence [Recovered/Resolved]
